FAERS Safety Report 4322750-8 (Version None)
Quarter: 2004Q1

REPORT INFORMATION
  Report Type: 
  Country: None (occurrence: None)
  Receive Date: 20040324
  Receipt Date: 20040311
  Transmission Date: 20041129
  Serious: Yes (Hospitalization)
  Sender: FDA-Public Use
  Company Number: FR-GLAXOSMITHKLINE-B0326304A

PATIENT
  Age: 33 Year
  Sex: Female

DRUGS (4)
  1. ZOVIRAX [Suspect]
     Indication: HERPES VIRUS INFECTION
     Route: 048
     Dates: start: 19950317, end: 19950320
  2. ZOVIRAX [Suspect]
     Route: 061
     Dates: start: 19950317, end: 19950320
  3. PYOSTACINE [Suspect]
     Route: 048
     Dates: start: 19950320, end: 19950321
  4. OFLOCET [Suspect]
     Route: 048
     Dates: start: 19950320, end: 19950321

REACTIONS (5)
  - DERMATITIS ALLERGIC [None]
  - ECZEMA [None]
  - ECZEMA INFECTED [None]
  - EOSINOPHILIA [None]
  - STAPHYLOCOCCAL INFECTION [None]
